FAERS Safety Report 12201999 (Version 1)
Quarter: 2016Q1

REPORT INFORMATION
  Report Type: Spontaneous
  Country: NO (occurrence: NO)
  Receive Date: 20160322
  Receipt Date: 20160322
  Transmission Date: 20160526
  Serious: Yes (Other)
  Sender: FDA-Public Use
  Company Number: NO-PFIZER INC-2016161361

PATIENT
  Age: 26 Year
  Sex: Female
  Weight: 57 kg

DRUGS (17)
  1. INDERAL RETARD [Concomitant]
     Indication: HEART RATE INCREASED
     Dates: start: 20030625, end: 20140915
  2. ZOLOFT [Suspect]
     Active Substance: SERTRALINE HYDROCHLORIDE
     Dosage: 150 UNK, 1X/DAY
     Dates: start: 2007, end: 2009
  3. SOBRIL [Suspect]
     Active Substance: OXAZEPAM
     Indication: ANXIETY
     Dates: start: 20000704, end: 20131002
  4. PARACET [Concomitant]
     Active Substance: ACETAMINOPHEN
     Indication: PAIN
     Dates: start: 20101214
  5. TOLVON [Concomitant]
     Active Substance: MIANSERIN
     Dates: start: 20010116, end: 20090113
  6. AFIPRAN [Concomitant]
     Active Substance: METOCLOPRAMIDE HYDROCHLORIDE
     Indication: NAUSEA
     Dates: start: 20031114, end: 20140915
  7. VOLTAREN [Concomitant]
     Active Substance: DICLOFENAC SODIUM
     Indication: PAIN
     Dates: start: 20121019
  8. ORUDIS [Concomitant]
     Active Substance: KETOPROFEN
     Indication: PAIN
     Dates: start: 20110405, end: 20121019
  9. NEXIUM [Concomitant]
     Active Substance: ESOMEPRAZOLE MAGNESIUM
     Indication: REFLUX GASTRITIS
     Dates: start: 20060713, end: 20150706
  10. FANALGIN [Concomitant]
     Indication: PAIN
     Dates: start: 20020820, end: 20041101
  11. ZOLOFT [Suspect]
     Active Substance: SERTRALINE HYDROCHLORIDE
     Indication: ANXIETY
     Dosage: UNK, 1X/DAY
     Dates: start: 20000704, end: 2001
  12. ZOLOFT [Suspect]
     Active Substance: SERTRALINE HYDROCHLORIDE
     Dosage: 50 MG, 1X/DAY
     Dates: start: 2001, end: 2001
  13. NAPROXEN MYLAN [Concomitant]
     Active Substance: NAPROXEN
     Indication: PAIN
     Dosage: UNK
     Dates: start: 20010628, end: 20121219
  14. FENAZON-KOFFEIN [Concomitant]
     Indication: PAIN
     Dates: start: 20041101, end: 20150706
  15. ZOLOFT [Suspect]
     Active Substance: SERTRALINE HYDROCHLORIDE
     Dosage: 100 MG, 1X/DAY
     Dates: start: 2001, end: 2007
  16. ZOLOFT [Suspect]
     Active Substance: SERTRALINE HYDROCHLORIDE
     Dosage: 200 MG, 1X/DAY
     Dates: start: 2009, end: 20140915
  17. IMOVANE [Concomitant]
     Active Substance: ZOPICLONE
     Indication: INSOMNIA
     Dates: start: 20100531, end: 20101102

REACTIONS (41)
  - Nightmare [Unknown]
  - Aggression [Recovered/Resolved]
  - Hyperhidrosis [Unknown]
  - Alopecia [Unknown]
  - Contusion [Unknown]
  - Sinus disorder [Unknown]
  - Diarrhoea [Unknown]
  - Vaginal haemorrhage [Recovering/Resolving]
  - Anxiety [Unknown]
  - Hallucination [Unknown]
  - Weight decreased [Unknown]
  - Personality change [Unknown]
  - Amnesia [Unknown]
  - Syncope [Unknown]
  - Dry mouth [Unknown]
  - Abdominal pain [Recovered/Resolved]
  - Muscle spasms [Unknown]
  - Fatigue [Unknown]
  - Headache [Unknown]
  - Panic reaction [Unknown]
  - Infertility female [Unknown]
  - Skin disorder [Unknown]
  - Lung disorder [Recovered/Resolved with Sequelae]
  - Hypothyroidism [Unknown]
  - Decreased appetite [Unknown]
  - Vomiting [Unknown]
  - Epistaxis [Unknown]
  - Musculoskeletal stiffness [Unknown]
  - Gastrooesophageal reflux disease [Recovering/Resolving]
  - Mucosal dryness [Recovered/Resolved]
  - Varicose vein [Recovering/Resolving]
  - Oral pain [Unknown]
  - Condition aggravated [Unknown]
  - Dysgeusia [Unknown]
  - Dizziness [Unknown]
  - Tremor [Unknown]
  - Fear [Unknown]
  - Micturition disorder [Unknown]
  - Muscle twitching [Unknown]
  - Learning disorder [Unknown]
  - Restlessness [Recovered/Resolved]

NARRATIVE: CASE EVENT DATE: 20000711
